FAERS Safety Report 10210321 (Version 1)
Quarter: 2014Q2

REPORT INFORMATION
  Report Type: Spontaneous
  Country: AU (occurrence: None)
  Receive Date: 20140528
  Receipt Date: 20140528
  Transmission Date: 20141212
  Serious: Yes (Other)
  Sender: FDA-Public Use
  Company Number: B0996456A

PATIENT
  Age: 40 Year
  Sex: Male

DRUGS (4)
  1. FLUTICASONE PROPIONATE [Suspect]
     Indication: ASTHMA
     Route: 055
  2. LOPINAVIR + RITONAVIR [Suspect]
     Indication: HIV INFECTION
  3. STAVUDINE [Concomitant]
  4. ABACAVIR SULPHATE [Concomitant]

REACTIONS (9)
  - Osteonecrosis [None]
  - Adrenal suppression [None]
  - Osteopenia [None]
  - Asthma [None]
  - Blood cortisol decreased [None]
  - Arthralgia [None]
  - Cushingoid [None]
  - Muscle atrophy [None]
  - Joint range of motion decreased [None]
